FAERS Safety Report 5246247-6 (Version None)
Quarter: 2007Q1

REPORT INFORMATION
  Report Type: 
  Country: None (occurrence: None)
  Receive Date: 20070121
  Receipt Date: 20070206
  Transmission Date: 20070707
  Serious: Yes (Life-Threatening, Hospitalization)
  Sender: FDA-Public Use
  Company Number: S07-FRA-00552-01

PATIENT
  Age: 84 Year
  Sex: Male

DRUGS (2)
  1. EBIXA (MEMANTINE) [Suspect]
     Indication: DEMENTIA ALZHEIMER'S TYPE
     Dosage: 10 MG QD PO
     Route: 048
     Dates: end: 20070101
  2. RISPERDAL [Suspect]
     Dosage: 1 TABLET BID PO
     Route: 048
     Dates: end: 20070101

REACTIONS (2)
  - ABNORMAL BEHAVIOUR [None]
  - BRADYCARDIA [None]
